FAERS Safety Report 8776174 (Version 1)
Quarter: 2012Q4

REPORT INFORMATION
  Report Type: 
  Country: BR (occurrence: BR)
  Receive Date: 20120910
  Receipt Date: 20120910
  Transmission Date: 20130627
  Serious: Yes (Hospitalization)
  Sender: FDA-Public Use
  Company Number: BR-ASTRAZENECA-2012SE69370

PATIENT
  Age: 49 Year
  Sex: Female
  Weight: 94 kg

DRUGS (4)
  1. SELOZOK [Suspect]
     Route: 048
     Dates: start: 201104
  2. CRESTOR [Suspect]
     Route: 048
     Dates: start: 201104
  3. ALDACTONE [Concomitant]
     Route: 048
  4. OMETEC [Concomitant]
     Route: 048

REACTIONS (1)
  - Coronary artery occlusion [Recovered/Resolved]
